FAERS Safety Report 8830058 (Version 1)
Quarter: 2012Q4

REPORT INFORMATION
  Report Type: 
  Country: US (occurrence: US)
  Receive Date: 20121008
  Receipt Date: 20121008
  Transmission Date: 20130627
  Serious: No
  Sender: FDA-Public Use
  Company Number: US-PFIZER INC-2012246266

PATIENT
  Sex: Female

DRUGS (6)
  1. NEURONTIN [Suspect]
     Indication: PERIPHERAL NERVE INJURY
     Dosage: UNK
     Dates: start: 2007, end: 2007
  2. NEURONTIN [Suspect]
     Indication: NERVE INJURY
     Dosage: UNK
     Dates: start: 2011, end: 2011
  3. LYRICA [Suspect]
     Indication: PERIPHERAL NERVE INJURY
     Dosage: 200 mg, 3x/day
     Dates: start: 2007, end: 2011
  4. LYRICA [Suspect]
     Indication: NERVE INJURY
     Dosage: 75 mg, UNK
     Dates: start: 2011
  5. METHADONE [Concomitant]
     Indication: PAIN
     Dosage: UNK
  6. NORCO [Concomitant]
     Indication: PAIN
     Dosage: UNK

REACTIONS (3)
  - Malaise [Recovered/Resolved]
  - Head discomfort [Recovered/Resolved]
  - Pain [Unknown]
